FAERS Safety Report 11145524 (Version 1)
Quarter: 2015Q2

REPORT INFORMATION
  Report Type: Not Available
  Country: US (occurrence: US)
  Receive Date: 20150526
  Receipt Date: 20150526
  Transmission Date: 20150821
  Serious: No
  Sender: FDA-Public Use
  Company Number: US-LUPIN PHARMACEUTICALS INC.-E2B_00003502

PATIENT
  Age: 43 Year
  Sex: Female

DRUGS (1)
  1. ENSKYCE [Suspect]
     Active Substance: DESOGESTREL\ETHINYL ESTRADIOL
     Indication: MENORRHAGIA
     Dosage: 0.15/0.03 MG
     Dates: start: 20150410

REACTIONS (3)
  - Drug dose omission [Unknown]
  - Product use issue [Unknown]
  - No adverse event [Unknown]

NARRATIVE: CASE EVENT DATE: 20150411
